FAERS Safety Report 10053726 (Version 1)
Quarter: 2014Q2

REPORT INFORMATION
  Report Type: Report from Study
  Country: MX (occurrence: MX)
  Receive Date: 20140402
  Receipt Date: 20140402
  Transmission Date: 20141212
  Serious: Yes (Other)
  Sender: FDA-Public Use
  Company Number: PHHY2014MX039370

PATIENT
  Age: 78 Year
  Sex: Female

DRUGS (5)
  1. TRILEPTAL [Suspect]
     Indication: CONVULSION
     Dosage: 1 DF, DAILY
     Route: 048
  2. TRILEPTAL [Suspect]
     Indication: TINNITUS
  3. TRILEPTAL [Suspect]
     Indication: OFF LABEL USE
  4. NIMOTOP [Concomitant]
     Indication: TINNITUS
     Dosage: 1 UKN, DAILY
     Route: 048
     Dates: start: 1997
  5. REUMOPHAN ALKA [Concomitant]
     Indication: ARTHRALGIA
     Dosage: 1 UKN, Q12H
     Route: 048

REACTIONS (2)
  - Angina unstable [Recovered/Resolved]
  - Pulmonary fibrosis [Not Recovered/Not Resolved]
